FAERS Safety Report 12231772 (Version 3)
Quarter: 2016Q3

REPORT INFORMATION
  Report Type: Report from Study
  Country: US (occurrence: US)
  Receive Date: 20160401
  Receipt Date: 20160906
  Transmission Date: 20161109
  Serious: Yes (Life-Threatening, Hospitalization)
  Sender: FDA-Public Use
  Company Number: US-VALIDUS PHARMACEUTICALS LLC-US-2016VAL000636

PATIENT

DRUGS (33)
  1. BERAPROST SODIUM [Suspect]
     Active Substance: BERAPROST SODIUM
     Indication: PULMONARY ARTERIAL HYPERTENSION
     Dosage: UNK
     Dates: start: 20141015, end: 20150305
  2. ALLOPURINOL. [Concomitant]
     Active Substance: ALLOPURINOL
     Indication: GOUT
     Dosage: 300 MG, DAILY
     Route: 048
     Dates: start: 20090909
  3. COUMADIN [Concomitant]
     Active Substance: WARFARIN SODIUM
     Dosage: UNK
     Dates: start: 20131230
  4. BACITRACIN. [Concomitant]
     Active Substance: BACITRACIN
     Indication: CELLULITIS
     Dosage: 500 UNREPORTED UNITS , TOTAL DAILY DOSE, FOUR TIMES PER DAY
     Route: 061
     Dates: start: 20141022
  5. TYVASO [Suspect]
     Active Substance: TREPROSTINIL
     Indication: PULMONARY ARTERIAL HYPERTENSION
     Dosage: 216 ?G, TOTAL
     Dates: start: 20140602
  6. MELOXICAM. [Concomitant]
     Active Substance: MELOXICAM
     Indication: OSTEOARTHRITIS
     Dosage: 15 MG, TOTAL DAILY DOSE
     Route: 048
     Dates: start: 20131230
  7. VICODIN [Concomitant]
     Active Substance: ACETAMINOPHEN\HYDROCODONE BITARTRATE
     Indication: OSTEOARTHRITIS
     Dosage: 15-1500 MG, TOTAL DAILY DOSE
     Route: 048
     Dates: start: 20090106
  8. ITRACONAZOLE EG [Concomitant]
     Indication: CELLULITIS
     Dosage: 100 MG, DAILY
     Route: 048
     Dates: start: 20141105, end: 201502
  9. BERAPROST SODIUM [Suspect]
     Active Substance: BERAPROST SODIUM
     Dosage: UNK
  10. INDOMETHACIN                       /00003801/ [Concomitant]
     Active Substance: INDOMETHACIN
     Indication: GOUT
     Dosage: UNK
     Dates: start: 20110913
  11. REVATIO [Concomitant]
     Active Substance: SILDENAFIL CITRATE
     Indication: HYPERTENSION
  12. BUMETANIDE. [Concomitant]
     Active Substance: BUMETANIDE
     Indication: HYPERTENSION
     Dosage: 1 MG, DAILY
     Route: 048
     Dates: start: 20131230
  13. VICODIN [Concomitant]
     Active Substance: ACETAMINOPHEN\HYDROCODONE BITARTRATE
     Dosage: UNK
     Dates: start: 20131230
  14. REVATIO [Concomitant]
     Active Substance: SILDENAFIL CITRATE
     Indication: PULMONARY ARTERIAL HYPERTENSION
     Dosage: 800 MG, TID
     Route: 048
     Dates: start: 20090106
  15. PAXIL [Concomitant]
     Active Substance: PAROXETINE HYDROCHLORIDE
     Indication: DEPRESSION
     Dosage: 20 MG, DAILY
     Route: 048
     Dates: start: 20110531
  16. PAROXETINE. [Concomitant]
     Active Substance: PAROXETINE
     Indication: DEPRESSION
     Dosage: UNK
     Dates: start: 20131230
  17. FENTANIL [Concomitant]
     Active Substance: FENTANYL
     Dosage: UNK
     Dates: start: 20131230
  18. PAXIL [Concomitant]
     Active Substance: PAROXETINE HYDROCHLORIDE
     Indication: HYPERTENSION
  19. TYVASO [Suspect]
     Active Substance: TREPROSTINIL
     Dosage: 216 ?G, QID, INHALATION
     Dates: end: 20160509
  20. ALLOPURINOL. [Concomitant]
     Active Substance: ALLOPURINOL
     Dosage: UNK
     Dates: start: 20131230
  21. BACITRACIN. [Concomitant]
     Active Substance: BACITRACIN
     Indication: ABSCESS LIMB
  22. RITALIN [Concomitant]
     Active Substance: METHYLPHENIDATE HYDROCHLORIDE
     Indication: DEPRESSION
     Dosage: 40 MG, QD
     Route: 048
     Dates: start: 20131230
  23. LASIX [Suspect]
     Active Substance: FUROSEMIDE
     Indication: OEDEMA
     Dosage: 40 MG, TOTAL DAILY DOSE
     Route: 048
     Dates: start: 20131230
  24. LASIX [Suspect]
     Active Substance: FUROSEMIDE
     Dosage: 40 MG, QD
     Route: 048
     Dates: start: 20090417
  25. TYVASO [Suspect]
     Active Substance: TREPROSTINIL
     Dosage: 54 ?G, QID, INHALATION
     Dates: start: 20140610, end: 20150506
  26. PAROXETINE. [Concomitant]
     Active Substance: PAROXETINE
     Indication: OBSESSIVE-COMPULSIVE DISORDER
     Dosage: 10 MG,TOTAL DAILY DOSE
     Route: 048
     Dates: start: 20121114
  27. COUMADIN [Concomitant]
     Active Substance: WARFARIN SODIUM
     Indication: PULMONARY ARTERIAL HYPERTENSION
     Dosage: 5 MG, DAILY
     Route: 048
     Dates: start: 20090423
  28. TYVASO [Suspect]
     Active Substance: TREPROSTINIL
     Dosage: 5.4  MG/ML , TOTAL DAILY DOSE , INHALATION
  29. INDOMETHACIN                       /00003801/ [Concomitant]
     Active Substance: INDOMETHACIN
     Dosage: 50 MG, TID
     Route: 048
     Dates: start: 20131230
  30. LETAIRIS [Concomitant]
     Active Substance: AMBRISENTAN
     Indication: PULMONARY ARTERIAL HYPERTENSION
     Dosage: 10 MG, DAILY
     Route: 048
     Dates: start: 20090106
  31. FENTANIL [Concomitant]
     Active Substance: FENTANYL
     Indication: OSTEOARTHRITIS
     Dosage: 100 UNREPORTED UNITS , TOTAL DAILY DOSE
     Route: 062
     Dates: start: 20100728
  32. ITRACONAZOLE EG [Concomitant]
     Indication: ABSCESS LIMB
  33. SYMBICORT [Concomitant]
     Active Substance: BUDESONIDE\FORMOTEROL FUMARATE DIHYDRATE
     Indication: PULMONARY ARTERIAL HYPERTENSION
     Dosage: 80 MG, TOTAL DAILY DOSE INHALED
     Dates: start: 20131230

REACTIONS (9)
  - Metabolic encephalopathy [Recovered/Resolved]
  - Cerebral infarction [Recovered/Resolved]
  - Cerebral artery embolism [Recovered/Resolved]
  - Sinusitis [Recovering/Resolving]
  - Respiratory failure [Recovered/Resolved]
  - Deep vein thrombosis [Recovered/Resolved]
  - Extradural abscess [Recovered/Resolved]
  - Endocarditis [Recovered/Resolved]
  - Acute kidney injury [Recovered/Resolved]

NARRATIVE: CASE EVENT DATE: 20150305
